FAERS Safety Report 9384080 (Version 1)
Quarter: 2013Q3

REPORT INFORMATION
  Report Type: Spontaneous
  Country: GB (occurrence: GB)
  Receive Date: 20130705
  Receipt Date: 20130705
  Transmission Date: 20140515
  Serious: Yes (Other)
  Sender: FDA-Public Use
  Company Number: GB-JNJFOC-20130700397

PATIENT
  Age: 73 Year
  Sex: Female

DRUGS (4)
  1. PARACETAMOL/CODEINE PHOSPHATE [Suspect]
     Indication: ARTHRALGIA
     Route: 065
  2. ASPIRIN [Concomitant]
     Route: 065
  3. ANTICHOLESTEROL MEDICATION [Concomitant]
     Route: 065
  4. ^BLOOD PRESSURE^ MEDICATION [Concomitant]
     Route: 065

REACTIONS (5)
  - Agitation [Not Recovered/Not Resolved]
  - Feeling jittery [Not Recovered/Not Resolved]
  - Tremor [Not Recovered/Not Resolved]
  - Decreased appetite [Not Recovered/Not Resolved]
  - Malaise [Not Recovered/Not Resolved]
